FAERS Safety Report 5258429-8 (Version None)
Quarter: 2007Q1

REPORT INFORMATION
  Report Type: 
  Country: None (occurrence: None)
  Receive Date: 20070308
  Receipt Date: 20070301
  Transmission Date: 20070707
  Serious: Yes (Death)
  Sender: FDA-Public Use
  Company Number: AU-ELI_LILLY_AND_COMPANY-AU200703000981

PATIENT
  Age: 27 Year
  Sex: Male

DRUGS (3)
  1. DIAZEPAM [Concomitant]
  2. CLOZARIL [Concomitant]
     Indication: SCHIZOPHRENIA
     Dosage: 200 MG, DAILY (1/D)
     Route: 048
     Dates: start: 19980727
  3. OLANZAPINE [Suspect]

REACTIONS (3)
  - MYOCARDITIS [None]
  - SUDDEN DEATH [None]
  - SUICIDE ATTEMPT [None]
